FAERS Safety Report 5829496-5 (Version None)
Quarter: 2008Q3

REPORT INFORMATION
  Report Type: 
  Country: None (occurrence: None)
  Receive Date: 20080729
  Receipt Date: 20080717
  Transmission Date: 20090109
  Serious: Yes (Hospitalization)
  Sender: FDA-Public Use
  Company Number: 8034660

PATIENT
  Age: 24 Month
  Sex: Male

DRUGS (1)
  1. KEPPRA [Suspect]
     Dates: end: 20080713

REACTIONS (4)
  - HAEMOGLOBIN DECREASED [None]
  - HEPATITIS [None]
  - PYREXIA [None]
  - RASH [None]
